FAERS Safety Report 13448125 (Version 4)
Quarter: 2017Q3

REPORT INFORMATION
  Report Type: Spontaneous
  Country: US (occurrence: US)
  Receive Date: 20170417
  Receipt Date: 20170906
  Transmission Date: 20171127
  Serious: No
  Sender: FDA-Public Use
  Company Number: US-BAYER-2017-070898

PATIENT
  Age: 57 Year
  Sex: Female
  Weight: 50.79 kg

DRUGS (1)
  1. MIRENA [Suspect]
     Active Substance: LEVONORGESTREL
     Indication: CONTRACEPTION
     Dosage: 20 MCG/24HR, CONT
     Route: 015
     Dates: start: 2012

REACTIONS (4)
  - Underweight [None]
  - Device breakage [Unknown]
  - Complication of device removal [Unknown]
  - Atrophic vulvovaginitis [None]

NARRATIVE: CASE EVENT DATE: 201704
